FAERS Safety Report 15795646 (Version 1)
Quarter: 2019Q1

REPORT INFORMATION
  Report Type: Spontaneous
  Country: US (occurrence: US)
  Receive Date: 20190107
  Receipt Date: 20190107
  Transmission Date: 20190417
  Serious: No
  Sender: FDA-Public Use
  Company Number: US-MYLANLABS-2018M1093474

PATIENT

DRUGS (1)
  1. ESTRADIOL TRANSDERMAL SYSTEM [Suspect]
     Active Substance: ESTRADIOL
     Indication: HORMONE REPLACEMENT THERAPY
     Dosage: 1 MILLIGRAM, BIWEEKLY
     Route: 062
     Dates: start: 2014

REACTIONS (5)
  - Application site pruritus [Unknown]
  - Skin irritation [Unknown]
  - Application site mass [Unknown]
  - Application site erythema [Unknown]
  - Application site dryness [Unknown]
